FAERS Safety Report 4387921-3 (Version None)
Quarter: 2004Q2

REPORT INFORMATION
  Report Type: 
  Country: None (occurrence: None)
  Receive Date: 20040607
  Receipt Date: 20031217
  Transmission Date: 20050107
  Serious: Yes (Other)
  Sender: FDA-Public Use
  Company Number: 354131

PATIENT
  Age: 43 Year
  Sex: Male

DRUGS (4)
  1. ISOTRETINOIN [Suspect]
     Indication: ACNE
  2. NA [Concomitant]
     Dosage: NA
  3. METFORMIN [Concomitant]
  4. GLYBURIDE [Concomitant]

REACTIONS (1)
  - HYPERTRIGLYCERIDAEMIA [None]
